FAERS Safety Report 10089912 (Version 1)
Quarter: 2014Q2

REPORT INFORMATION
  Report Type: Spontaneous
  Country: US (occurrence: US)
  Receive Date: 20140421
  Receipt Date: 20140421
  Transmission Date: 20141212
  Serious: No
  Sender: FDA-Public Use
  Company Number: US-ABBVIE-13P-163-1100730-00

PATIENT
  Sex: Female
  Weight: 58.11 kg

DRUGS (7)
  1. LUPRON DEPOT-PED [Suspect]
     Indication: CONVULSION
     Dates: start: 2006
  2. LUPRON DEPOT-PED [Suspect]
     Indication: HORMONE SUPPRESSION THERAPY
  3. DEPAKOTE [Concomitant]
     Indication: CONVULSION
  4. PHENOBARBITAL [Concomitant]
     Indication: CONVULSION
  5. LAMICTAL [Concomitant]
     Indication: CONVULSION
  6. SELBATOL [Concomitant]
     Indication: CONVULSION
  7. ATIVAN [Concomitant]
     Indication: CONVULSION
     Dosage: AS NEEDED

REACTIONS (2)
  - Vaginal haemorrhage [Not Recovered/Not Resolved]
  - Off label use [Not Recovered/Not Resolved]
